FAERS Safety Report 23351357 (Version 2)
Quarter: 2024Q1

REPORT INFORMATION
  Report Type: Report from Study
  Country: GB (occurrence: None)
  Receive Date: 20231229
  Receipt Date: 20240102
  Transmission Date: 20240410
  Serious: Yes (Hospitalization)
  Sender: FDA-Public Use
  Company Number: 2023A295390

PATIENT
  Sex: Female

DRUGS (1)
  1. FASENRA [Suspect]
     Active Substance: BENRALIZUMAB
     Indication: Asthma
     Route: 058
     Dates: start: 202309

REACTIONS (6)
  - Pharyngeal swelling [Unknown]
  - Dysphagia [Unknown]
  - Chest pain [Unknown]
  - Rash [Unknown]
  - Thyroid mass [Unknown]
  - Off label use [Unknown]
